FAERS Safety Report 15878603 (Version 2)
Quarter: 2019Q1

REPORT INFORMATION
  Report Type: Spontaneous
  Country: US (occurrence: US)
  Receive Date: 20190128
  Receipt Date: 20190213
  Transmission Date: 20190417
  Serious: No
  Sender: FDA-Public Use
  Company Number: US-ASTRAZENECA-2019SE02352

PATIENT
  Age: 71 Year
  Sex: Female

DRUGS (1)
  1. PULMICORT FLEXHALER [Suspect]
     Active Substance: BUDESONIDE
     Dosage: 2 PUFFS TWICE PER DAY
     Route: 055
     Dates: start: 2016

REACTIONS (4)
  - Arthralgia [Unknown]
  - Product odour abnormal [Unknown]
  - Product taste abnormal [Unknown]
  - Intentional device misuse [Unknown]

NARRATIVE: CASE EVENT DATE: 2018
